FAERS Safety Report 19592187 (Version 2)
Quarter: 2021Q3

REPORT INFORMATION
  Report Type: Spontaneous
  Country: US (occurrence: US)
  Receive Date: 20210722
  Receipt Date: 20210727
  Transmission Date: 20211014
  Serious: No
  Sender: FDA-Public Use
  Company Number: US-TEVA-2021-US-1934915

PATIENT
  Age: 95 Year
  Sex: Female

DRUGS (1)
  1. NIFEDIAC CC [Suspect]
     Active Substance: NIFEDIPINE
     Indication: HYPERTENSION
     Dosage: FORM OF ADMIN: EXTENDED / SUSTAINED RELEASE TABLET
     Route: 065
     Dates: start: 202104, end: 202104

REACTIONS (4)
  - Product quality issue [Unknown]
  - Abdominal pain [Recovered/Resolved]
  - Diarrhoea [Recovered/Resolved]
  - Chromaturia [Recovered/Resolved]

NARRATIVE: CASE EVENT DATE: 202104
